FAERS Safety Report 6466145-X (Version None)
Quarter: 2009Q4

REPORT INFORMATION
  Report Type: 
  Country: None (occurrence: None)
  Receive Date: 20091201
  Receipt Date: 20091201
  Transmission Date: 20100525
  Serious: Yes (Other)
  Sender: FDA-Public Use
  Company Number: None

PATIENT
  Age: 57 Year
  Sex: Male
  Weight: 80.2867 kg

DRUGS (2)
  1. PRISTIQ [Suspect]
     Indication: ANXIETY
     Dosage: 50 MG DAILY PO
     Route: 048
     Dates: start: 20081008, end: 20091130
  2. AVALIDE [Concomitant]

REACTIONS (9)
  - DISTURBANCE IN ATTENTION [None]
  - DIZZINESS [None]
  - DRUG DEPENDENCE [None]
  - DRUG WITHDRAWAL SYNDROME [None]
  - FEELING ABNORMAL [None]
  - FRUSTRATION [None]
  - IMPAIRED WORK ABILITY [None]
  - NAUSEA [None]
  - TINNITUS [None]
